FAERS Safety Report 5195651-3 (Version None)
Quarter: 2006Q4

REPORT INFORMATION
  Report Type: 
  Country: None (occurrence: None)
  Receive Date: 20061222
  Receipt Date: 20061222
  Transmission Date: 20070319
  Serious: Yes (Other)
  Sender: FDA-Public Use
  Company Number: None

PATIENT
  Sex: Male

DRUGS (1)
  1. NAVANE [Suspect]
     Indication: SCHIZOAFFECTIVE DISORDER
     Dosage: 10MG   ONCE AT BEDTIME PO
     Route: 048
     Dates: start: 20060926, end: 20060927

REACTIONS (3)
  - AKINESIA [None]
  - OCULOGYRATION [None]
  - THERAPEUTIC RESPONSE DECREASED [None]
